FAERS Safety Report 22162672 (Version 1)
Quarter: 2023Q1

REPORT INFORMATION
  Report Type: Spontaneous
  Country: US (occurrence: US)
  Receive Date: 20230331
  Receipt Date: 20230331
  Transmission Date: 20230417
  Serious: Yes (Other)
  Sender: FDA-Public Use
  Company Number: US-JNJFOC-20230357205

PATIENT
  Sex: Male
  Weight: 79.450 kg

DRUGS (1)
  1. ELMIRON [Suspect]
     Active Substance: PENTOSAN POLYSULFATE SODIUM
     Indication: Cystitis interstitial
     Route: 065

REACTIONS (3)
  - Blindness [Unknown]
  - Age-related macular degeneration [Unknown]
  - Product label issue [Unknown]
